FAERS Safety Report 8650353 (Version 5)
Quarter: 2012Q4

REPORT INFORMATION
  Report Type: Report from Study
  Country: GB (occurrence: US)
  Receive Date: 20120705
  Receipt Date: 20121018
  Transmission Date: 20130627
  Serious: Yes (Hospitalization)
  Sender: FDA-Public Use
  Company Number: GB-SANOFI-AVENTIS-2012SA045896

PATIENT
  Sex: Female

DRUGS (3)
  1. DOCETAXEL [Suspect]
     Indication: CARCINOMA OF TONGUE
     Route: 065
     Dates: start: 20120503
  2. BLINDED THERAPY [Suspect]
     Indication: CARCINOMA OF TONGUE
     Route: 048
     Dates: start: 20120503
  3. CISPLATIN [Suspect]
     Indication: CARCINOMA OF TONGUE
     Route: 065

REACTIONS (15)
  - Hypokalaemia [Recovered/Resolved]
  - Device leakage [Unknown]
  - Electrolyte imbalance [Recovered/Resolved]
  - Hypomagnesaemia [Recovered/Resolved]
  - Hypokalaemia [Recovered/Resolved]
  - Cellulitis staphylococcal [Unknown]
  - Clostridium difficile colitis [Recovered/Resolved]
  - Gastric haemorrhage [Recovered/Resolved]
  - Anaemia [Recovered/Resolved]
  - Abdominal pain [Unknown]
  - Diarrhoea [Recovered/Resolved]
  - Dehydration [Recovered/Resolved]
  - Asthenia [Recovered/Resolved]
  - Renal failure acute [Recovered/Resolved]
  - Postoperative wound infection [Recovered/Resolved]
